FAERS Safety Report 16278658 (Version 1)
Quarter: 2019Q2

REPORT INFORMATION
  Report Type: Other
  Country: US (occurrence: US)
  Receive Date: 20190506
  Receipt Date: 20190506
  Transmission Date: 20190711
  Serious: No
  Sender: FDA-Public Use
  Company Number: US-LEADIANT BIOSCIENCES, INC.-2019STPI000133

PATIENT

DRUGS (8)
  1. PREVACID [Concomitant]
     Active Substance: LANSOPRAZOLE
  2. LABETALOL [Concomitant]
     Active Substance: LABETALOL\LABETALOL HYDROCHLORIDE
  3. REVCOVI [Suspect]
     Active Substance: ELAPEGADEMASE-LVLR
     Indication: COMBINED IMMUNODEFICIENCY
     Dosage: 6.6 MG, UNK
     Route: 030
     Dates: start: 20190125
  4. BACTRIM [Concomitant]
     Active Substance: SULFAMETHOXAZOLE\TRIMETHOPRIM
  5. TOBRAMYCIN. [Concomitant]
     Active Substance: TOBRAMYCIN
  6. ADAGEN [Concomitant]
     Active Substance: PEGADEMASE BOVINE
     Indication: COMBINED IMMUNODEFICIENCY
  7. SODIUM CITRATE. [Concomitant]
     Active Substance: SODIUM CITRATE
  8. ZYVOX [Concomitant]
     Active Substance: LINEZOLID

REACTIONS (4)
  - Nephrolithiasis [Not Recovered/Not Resolved]
  - Dysuria [Not Recovered/Not Resolved]
  - Ecchymosis [Not Recovered/Not Resolved]
  - Micturition urgency [Recovering/Resolving]

NARRATIVE: CASE EVENT DATE: 2019
